FAERS Safety Report 5622616-7 (Version None)
Quarter: 2008Q1

REPORT INFORMATION
  Report Type: 
  Country: None (occurrence: None)
  Receive Date: 20080211
  Receipt Date: 20080211
  Transmission Date: 20080703
  Serious: Yes (Hospitalization)
  Sender: FDA-Public Use
  Company Number: None

PATIENT
  Age: 65 Year
  Sex: Male

DRUGS (2)
  1. VANCOMYCIN [Suspect]
     Indication: UPPER RESPIRATORY TRACT INFECTION
     Dosage: 1GM BID IV
     Route: 042
     Dates: start: 20071113, end: 20071126
  2. AMPICILLIN [Suspect]
     Dosage: 600MG QID IV
     Route: 042
     Dates: start: 20071120, end: 20071123

REACTIONS (1)
  - DIARRHOEA [None]
